FAERS Safety Report 10607824 (Version 2)
Quarter: 2014Q4

REPORT INFORMATION
  Report Type: Report from Study
  Country: ES (occurrence: ES)
  Receive Date: 20141125
  Receipt Date: 20141125
  Transmission Date: 20150529
  Serious: Yes (Hospitalization)
  Sender: FDA-Public Use
  Company Number: ES-ABBVIE-12P-144-0956617-04

PATIENT
  Sex: Male

DRUGS (5)
  1. HUMIRA [Suspect]
     Active Substance: ADALIMUMAB
     Indication: CROHN^S DISEASE
     Route: 058
     Dates: start: 20071215, end: 20071215
  2. INFLIXIMAB [Concomitant]
     Active Substance: INFLIXIMAB
     Indication: ANORECTAL DISORDER
     Dosage: AT BEGINNING 15 DAYS AND LATER EVERY 8 WEEKS
     Dates: start: 20100511
  3. INFLIXIMAB [Concomitant]
     Active Substance: INFLIXIMAB
     Indication: FISTULA DISCHARGE
     Dates: start: 20110906
  4. HUMIRA [Suspect]
     Active Substance: ADALIMUMAB
     Dosage: WEEK 2
     Route: 058
  5. HUMIRA [Suspect]
     Active Substance: ADALIMUMAB
     Route: 058
     Dates: end: 20100401

REACTIONS (2)
  - Fistula discharge [Unknown]
  - Anal fistula [Unknown]

NARRATIVE: CASE EVENT DATE: 20101023
